FAERS Safety Report 19363441 (Version 2)
Quarter: 2021Q2

REPORT INFORMATION
  Report Type: Spontaneous
  Country: JP (occurrence: JP)
  Receive Date: 20210602
  Receipt Date: 20210608
  Transmission Date: 20210717
  Serious: Yes (Death, Hospitalization, Other)
  Sender: FDA-Public Use
  Company Number: JP-PFIZER INC-2021576135

PATIENT
  Age: 31 Year
  Sex: Female

DRUGS (3)
  1. METHYLPREDNISOLONE. [Suspect]
     Active Substance: METHYLPREDNISOLONE
     Dosage: 500 MG
     Route: 042
     Dates: start: 199309
  2. CYCLOPHOSPHAMIDE. [Suspect]
     Active Substance: CYCLOPHOSPHAMIDE
     Indication: SYSTEMIC LUPUS ERYTHEMATOSUS
     Dosage: 800 MG, MONTHLY
     Route: 042
     Dates: start: 199203
  3. METHYLPREDNISOLONE. [Suspect]
     Active Substance: METHYLPREDNISOLONE
     Indication: SYSTEMIC LUPUS ERYTHEMATOSUS
     Dosage: 500 MG, MONTHLY
     Route: 042
     Dates: start: 199203

REACTIONS (5)
  - Respiratory arrest [Fatal]
  - Hemiplegia [Fatal]
  - Progressive multifocal leukoencephalopathy [Fatal]
  - Coma [Fatal]
  - Treatment failure [Fatal]

NARRATIVE: CASE EVENT DATE: 1993
